FAERS Safety Report 20393534 (Version 2)
Quarter: 2022Q2

REPORT INFORMATION
  Report Type: Spontaneous
  Country: GB (occurrence: GB)
  Receive Date: 20220128
  Receipt Date: 20220406
  Transmission Date: 20220721
  Serious: Yes (Other)
  Sender: FDA-Public Use
  Company Number: None

PATIENT
  Age: 83 Year
  Sex: Male
  Weight: 98 kg

DRUGS (8)
  1. EDOXABAN [Suspect]
     Active Substance: EDOXABAN
     Indication: Blood viscosity increased
     Dosage: 30 MG, QD (TAKE ONE TABLET ONCE DAILY TO THIN BLOOD)
     Route: 065
     Dates: start: 20220106
  2. CALCIUM CARBONATE [Concomitant]
     Active Substance: CALCIUM CARBONATE
     Indication: Product used for unknown indication
     Dosage: 1 DF, QD (TAKE ONE IN THE MORNING)
     Route: 065
     Dates: start: 20211029
  3. DOXAZOSIN [Concomitant]
     Active Substance: DOXAZOSIN MESYLATE
     Indication: Product used for unknown indication
     Dosage: 1 DF, BID (TAKE ONE IN THE MORNING AND EVENING)
     Route: 065
     Dates: start: 20210517, end: 20211029
  4. FUROSEMIDE [Concomitant]
     Active Substance: FUROSEMIDE
     Indication: Product used for unknown indication
     Dosage: 1 DF, QD (TAKE ONE IN MORNING)
     Route: 065
     Dates: start: 20210813
  5. LOSARTAN [Concomitant]
     Active Substance: LOSARTAN
     Indication: Product used for unknown indication
     Dosage: 1 DF, QD (TAKE ONE DAILY AS PER HOSPITAL ADVICE)
     Route: 065
     Dates: start: 20210325
  6. ACETAMINOPHEN [Concomitant]
     Active Substance: ACETAMINOPHEN
     Indication: Product used for unknown indication
     Dosage: 2 DF, QID WHEN REQUIRED (TWO TABLETS FOUR TIMES A DAY)
     Route: 065
     Dates: start: 20210325
  7. PREDNISOLONE [Concomitant]
     Active Substance: PREDNISOLONE
     Indication: Product used for unknown indication
     Dosage: 1 DF, QD (TAKE ONE IN THE MORNING)
     Route: 065
     Dates: start: 20211217
  8. ISOSORBIDE MONONITRATE [Concomitant]
     Active Substance: ISOSORBIDE MONONITRATE
     Indication: Product used for unknown indication
     Dosage: 1 DF, QD
     Dates: start: 20211029, end: 20211110

REACTIONS (1)
  - Myalgia [Recovered/Resolved]

NARRATIVE: CASE EVENT DATE: 20220114
